FAERS Safety Report 25557197 (Version 3)
Quarter: 2025Q3

REPORT INFORMATION
  Report Type: Spontaneous
  Country: EU (occurrence: EU)
  Receive Date: 20250715
  Receipt Date: 20250904
  Transmission Date: 20251021
  Serious: Yes (Hospitalization, Other)
  Sender: BAYER HEALTHCARE PHARMACEUTICALS INC.
  Company Number: EU-BAYER-2025A089916

PATIENT
  Age: 48 Year
  Sex: Female
  Weight: 56 kg

DRUGS (2)
  1. MIRENA [Suspect]
     Active Substance: LEVONORGESTREL
     Indication: Menstruation irregular
     Dosage: 20?G/DAY
     Route: 015
     Dates: start: 20240924, end: 20250702
  2. MIRENA [Suspect]
     Active Substance: LEVONORGESTREL
     Indication: Heavy menstrual bleeding

REACTIONS (50)
  - Dyspnoea [Recovered/Resolved]
  - Cough [Recovered/Resolved]
  - General physical health deterioration [Not Recovered/Not Resolved]
  - Blindness [Not Recovered/Not Resolved]
  - Head discomfort [Not Recovered/Not Resolved]
  - Bronchitis [None]
  - Tracheitis [None]
  - Respiratory disorder [Not Recovered/Not Resolved]
  - Rhinorrhoea [Not Recovered/Not Resolved]
  - Apathy [Not Recovered/Not Resolved]
  - Depression [Not Recovered/Not Resolved]
  - Mood swings [Not Recovered/Not Resolved]
  - Anhedonia [Not Recovered/Not Resolved]
  - Dizziness [Not Recovered/Not Resolved]
  - Headache [Not Recovered/Not Resolved]
  - Swelling face [Not Recovered/Not Resolved]
  - Periorbital swelling [Not Recovered/Not Resolved]
  - Alopecia [Not Recovered/Not Resolved]
  - Hirsutism [Not Recovered/Not Resolved]
  - Amnesia [Not Recovered/Not Resolved]
  - Aggression [Not Recovered/Not Resolved]
  - Hostility [Not Recovered/Not Resolved]
  - Brain fog [Not Recovered/Not Resolved]
  - Thinking abnormal [Not Recovered/Not Resolved]
  - Disturbance in attention [Not Recovered/Not Resolved]
  - Asthenia [Not Recovered/Not Resolved]
  - Weight increased [Not Recovered/Not Resolved]
  - Dyspepsia [Not Recovered/Not Resolved]
  - Dysphagia [Not Recovered/Not Resolved]
  - Taste disorder [Not Recovered/Not Resolved]
  - Muscular weakness [Not Recovered/Not Resolved]
  - Malaise [Not Recovered/Not Resolved]
  - Quality of life decreased [Not Recovered/Not Resolved]
  - Loss of libido [Not Recovered/Not Resolved]
  - Nausea [Not Recovered/Not Resolved]
  - Disorientation [Not Recovered/Not Resolved]
  - Influenza [Not Recovered/Not Resolved]
  - Hypersensitivity [Not Recovered/Not Resolved]
  - Illness [Not Recovered/Not Resolved]
  - Sick leave [Recovered/Resolved]
  - Anxiety [None]
  - Respiratory tract congestion [None]
  - Oropharyngeal pain [None]
  - Hyperhidrosis [None]
  - Upper respiratory tract infection [None]
  - Visual impairment [Not Recovered/Not Resolved]
  - Hypermetropia [None]
  - Presbyopia [None]
  - Hair growth abnormal [Not Recovered/Not Resolved]
  - Hypertrichosis [Not Recovered/Not Resolved]

NARRATIVE: CASE EVENT DATE: 20250201
